FAERS Safety Report 16125852 (Version 1)
Quarter: 2019Q1

REPORT INFORMATION
  Report Type: Spontaneous
  Country: FR (occurrence: FR)
  Receive Date: 20190328
  Receipt Date: 20190328
  Transmission Date: 20190418
  Serious: Yes (Hospitalization)
  Sender: FDA-Public Use
  Company Number: FR-AUROBINDO-AUR-APL-2019-016081

PATIENT

DRUGS (3)
  1. TRAMADOL. [Suspect]
     Active Substance: TRAMADOL
     Indication: PAIN
     Dosage: 200 MILLIGRAM, ONCE A DAY
     Route: 048
     Dates: end: 20190207
  2. INNOHEP [Suspect]
     Active Substance: TINZAPARIN SODIUM
     Indication: SURGERY
     Dosage: UNK
     Route: 058
     Dates: start: 20190116, end: 20190128
  3. CEFUROXIME. [Suspect]
     Active Substance: CEFUROXIME
     Indication: SURGERY
     Dosage: UNK
     Route: 042
     Dates: start: 20190116, end: 20190116

REACTIONS (2)
  - Eosinophilia [Recovered/Resolved]
  - Rash maculo-papular [Recovered/Resolved]

NARRATIVE: CASE EVENT DATE: 201901
